FAERS Safety Report 17730497 (Version 11)
Quarter: 2020Q4

REPORT INFORMATION
  Report Type: Report from Study
  Country: PA (occurrence: PA)
  Receive Date: 20200430
  Receipt Date: 20201230
  Transmission Date: 20210113
  Serious: Yes (Hospitalization, Other)
  Sender: FDA-Public Use
  Company Number: PHHY2019PA058544

PATIENT
  Age: 58 Year
  Sex: Male
  Weight: 90 kg

DRUGS (11)
  1. SCAPHO [Suspect]
     Active Substance: SECUKINUMAB
     Dosage: UNK (RESTARTED)
     Route: 058
     Dates: start: 20201005
  2. SCAPHO [Suspect]
     Active Substance: SECUKINUMAB
     Dosage: 150 MG, QMO
     Route: 065
  3. METICORTEN [Concomitant]
     Active Substance: PREDNISONE
     Indication: ANTIINFLAMMATORY THERAPY
     Dosage: 20 MG (FOR 5 DAYS) (1 OR 2 YEARS AGO)
     Route: 048
  4. SCAPHO [Suspect]
     Active Substance: SECUKINUMAB
     Indication: PSORIATIC ARTHROPATHY
     Dosage: 150 MG, UNK
     Route: 065
  5. SCAPHO [Suspect]
     Active Substance: SECUKINUMAB
     Dosage: 300 MG, 2 INJECTIONS QMO (150 MG EACH)
     Route: 058
     Dates: start: 201812, end: 202004
  6. COSENTYX [Suspect]
     Active Substance: SECUKINUMAB
     Indication: PSORIASIS
     Dosage: 300 MG, QMO
     Route: 058
     Dates: start: 20181205, end: 20200423
  7. SCAPHO [Suspect]
     Active Substance: SECUKINUMAB
     Dosage: 300 MG, UNKNOWN
     Route: 065
  8. COSENTYX [Suspect]
     Active Substance: SECUKINUMAB
     Dosage: 300 MG, 2 INJECTIONS QMO (150 MG EACH)
     Route: 058
     Dates: start: 20200626
  9. SCAPHO [Suspect]
     Active Substance: SECUKINUMAB
     Indication: PSORIASIS
     Dosage: 150 MG, QMO
     Route: 065
  10. SCAPHO [Suspect]
     Active Substance: SECUKINUMAB
     Dosage: 300 MG, QMO
     Route: 058
     Dates: start: 20181205, end: 20200423
  11. COSENTYX [Suspect]
     Active Substance: SECUKINUMAB
     Indication: PSORIATIC ARTHROPATHY
     Dosage: 150 UNK (BENEATH THE SKIN USUALLY VIA INJECTION)
     Route: 065
     Dates: start: 20200423

REACTIONS (37)
  - Blood glucose abnormal [Not Recovered/Not Resolved]
  - Nasal congestion [Unknown]
  - Erythema [Unknown]
  - Stress [Unknown]
  - Tenderness [Unknown]
  - Pain in extremity [Unknown]
  - Lipids abnormal [Not Recovered/Not Resolved]
  - Skin lesion [Recovered/Resolved]
  - Herpes virus infection [Not Recovered/Not Resolved]
  - Oedema peripheral [Unknown]
  - Mass [Unknown]
  - Joint swelling [Unknown]
  - Oropharyngeal pain [Recovering/Resolving]
  - Incorrect dose administered [Not Recovered/Not Resolved]
  - Wrong technique in product usage process [Unknown]
  - Psoriasis [Recovered/Resolved]
  - Gait inability [Not Recovered/Not Resolved]
  - Swelling [Unknown]
  - Nasopharyngitis [Unknown]
  - Rhinitis [Unknown]
  - Dysphonia [Recovering/Resolving]
  - Product dose omission issue [Unknown]
  - Limb injury [Unknown]
  - Headache [Unknown]
  - Drug ineffective [Unknown]
  - COVID-19 [Not Recovered/Not Resolved]
  - Arthralgia [Not Recovered/Not Resolved]
  - Pain [Not Recovered/Not Resolved]
  - Sleep disorder [Not Recovered/Not Resolved]
  - Condition aggravated [Not Recovered/Not Resolved]
  - Gastrooesophageal reflux disease [Not Recovered/Not Resolved]
  - Arthritis [Unknown]
  - Hypertension [Unknown]
  - Mobility decreased [Unknown]
  - Injection site injury [Not Recovered/Not Resolved]
  - Malaise [Unknown]
  - Speech disorder [Recovering/Resolving]

NARRATIVE: CASE EVENT DATE: 2018
